FAERS Safety Report 7866300-8 (Version None)
Quarter: 2011Q4

REPORT INFORMATION
  Report Type: 
  Country: None (occurrence: None)
  Receive Date: 20111028
  Receipt Date: 20101104
  Transmission Date: 20120403
  Serious: No
  Sender: FDA-Public Use
  Company Number: US-MYLANLABS-2010S1020452

PATIENT

DRUGS (1)
  1. DIAZEPAM [Suspect]

REACTIONS (5)
  - ANXIETY [None]
  - DISSOCIATIVE DISORDER [None]
  - DRUG EFFECT DECREASED [None]
  - SEDATION [None]
  - AGITATION [None]
